FAERS Safety Report 21537206 (Version 5)
Quarter: 2022Q4

REPORT INFORMATION
  Report Type: Report from Study
  Country: AR (occurrence: AR)
  Receive Date: 20221101
  Receipt Date: 20221219
  Transmission Date: 20230113
  Serious: Yes (Death, Life-Threatening, Hospitalization, Disabling, Other)
  Sender: FDA-Public Use
  Company Number: AR-AstraZeneca-2022A349511

PATIENT
  Age: 78 Year
  Sex: Female

DRUGS (19)
  1. FAM-TRASTUZUMAB DERUXTECAN-NXKI [Suspect]
     Active Substance: FAM-TRASTUZUMAB DERUXTECAN-NXKI
     Indication: Breast cancer metastatic
     Dosage: 5.4 MG/KG, ONCE EVERY 3 WK
     Route: 042
     Dates: start: 20220504, end: 20220928
  2. PERTUZUMAB [Suspect]
     Active Substance: PERTUZUMAB
     Indication: Breast cancer metastatic
     Dosage: 840 MG, ONCE EVERY 3 WK
     Route: 065
     Dates: start: 20220504, end: 20220928
  3. PANTOPRAZOLE SODIUM [Concomitant]
     Active Substance: PANTOPRAZOLE SODIUM
     Indication: Gastritis
     Dosage: 40 MG, DAILY
     Route: 048
     Dates: start: 20160101
  4. LOSARTAN POTASSIUM [Concomitant]
     Active Substance: LOSARTAN POTASSIUM
     Indication: Hypertension
     Dosage: 50 MG DAILY
     Route: 048
     Dates: start: 20020101
  5. HYDROCHLOROTHIAZIDE [Concomitant]
     Active Substance: HYDROCHLOROTHIAZIDE
     Indication: Hypertension
     Dosage: 12.5 MG
     Route: 048
     Dates: start: 20020101
  6. GLIMEPIRIDE [Concomitant]
     Active Substance: GLIMEPIRIDE
     Indication: Diabetes mellitus
     Dosage: 4 MG
     Route: 048
     Dates: start: 20020101
  7. METFORMIN HYDROCHLORIDE [Concomitant]
     Active Substance: METFORMIN HYDROCHLORIDE
     Indication: Diabetes mellitus
     Dosage: 850 MG
     Route: 048
     Dates: start: 20020101
  8. EZETIMIBE [Concomitant]
     Active Substance: EZETIMIBE
     Indication: Dyslipidaemia
     Dosage: 200 MG
     Route: 048
     Dates: start: 20020101
  9. DORZOLAMIDA [DORZOLAMIDE] [Concomitant]
     Indication: Glaucoma
     Dosage: 2 %
     Route: 047
     Dates: start: 20030101
  10. TIMOLOL [Concomitant]
     Active Substance: TIMOLOL
     Indication: Glaucoma
     Dosage: 0.5 %
     Route: 047
     Dates: start: 20030101
  11. ESCITALOPRAM [Concomitant]
     Active Substance: ESCITALOPRAM OXALATE
     Indication: Depression
     Dosage: 40 MG
     Route: 048
     Dates: start: 20100101
  12. ALPRAZOLAM [Concomitant]
     Active Substance: ALPRAZOLAM
     Indication: Depression
     Dosage: 1 MG
     Route: 048
     Dates: start: 20100101
  13. CILOSTAZOL [Concomitant]
     Active Substance: CILOSTAZOL
     Indication: Polypoidal choroidal vasculopathy
     Dosage: 100 MG
     Route: 048
     Dates: start: 20060101
  14. PREGABALIN [Concomitant]
     Active Substance: PREGABALIN
     Indication: Polypoidal choroidal vasculopathy
     Dosage: 75 MG
     Route: 048
     Dates: start: 20060101
  15. RELIVERAN [METOCLOPRAMIDE] [Concomitant]
     Indication: Nausea
     Dosage: 20
     Route: 048
     Dates: start: 20220504
  16. ONDANSETROM [ONDANSETRON HYDROCHLORIDE] [Concomitant]
     Indication: Premedication
     Dosage: 24 MG
     Route: 042
     Dates: start: 20220504
  17. ACRIVASTINE [Concomitant]
     Active Substance: ACRIVASTINE
     Indication: Premedication
     Dosage: 50 MG
     Route: 042
     Dates: start: 20220504
  18. DECADRON [DEXAMETHASONE TEBUTATE] [Concomitant]
     Indication: Premedication
     Dosage: 08 MG
     Route: 042
     Dates: start: 20220504
  19. ATROPINA [ATROPINE] [Concomitant]
     Indication: Chemotherapy
     Dosage: 0.5 MG
     Route: 058
     Dates: start: 20220504

REACTIONS (6)
  - Acute kidney injury [Fatal]
  - Pneumonia [Fatal]
  - Hyperglycaemia [Recovered/Resolved]
  - Metabolic acidosis [Recovered/Resolved]
  - Anaemia [Not Recovered/Not Resolved]
  - Haematuria [Not Recovered/Not Resolved]

NARRATIVE: CASE EVENT DATE: 20220907
